FAERS Safety Report 10589479 (Version 2)
Quarter: 2014Q4

REPORT INFORMATION
  Report Type: Spontaneous
  Country: IT (occurrence: None)
  Receive Date: 20141114
  Receipt Date: 20141230
  Transmission Date: 20150529
  Serious: Yes (Hospitalization)
  Sender: FDA-Public Use
  Company Number: 2614275

PATIENT
  Age: 72 Year
  Sex: Male

DRUGS (4)
  1. DOCETAXEL. [Suspect]
     Active Substance: DOCETAXEL
     Indication: LUNG NEOPLASM MALIGNANT
     Route: 042
     Dates: start: 20141009, end: 20141009
  2. RANITIDINA ANGENERICO [Concomitant]
     Active Substance: RANITIDINE HYDROCHLORIDE
  3. DEXAMETHASONE PHOSPHATE [Concomitant]
     Active Substance: DEXAMETHASONE PHOSPHATE
  4. DOCETAXEL. [Suspect]
     Active Substance: DOCETAXEL
     Indication: LUNG NEOPLASM MALIGNANT
     Route: 042
     Dates: start: 20141009, end: 20141009

REACTIONS (6)
  - Mucosal erosion [None]
  - Product quality issue [None]
  - Pyrexia [None]
  - Diarrhoea [None]
  - Asthenia [None]
  - Rash [None]

NARRATIVE: CASE EVENT DATE: 20141011
